FAERS Safety Report 14028501 (Version 3)
Quarter: 2017Q4

REPORT INFORMATION
  Report Type: Spontaneous
  Country: CN (occurrence: CN)
  Receive Date: 20170928
  Receipt Date: 20171010
  Transmission Date: 20180321
  Serious: Yes (Life-Threatening, Hospitalization, Other)
  Sender: FDA-Public Use
  Company Number: CN-GLENMARK PHARMACEUTICALS-2017GMK029037

PATIENT
  Age: 29 Year
  Sex: Female

DRUGS (3)
  1. METRONIDAZOLE. [Suspect]
     Active Substance: METRONIDAZOLE
     Indication: ANTIBIOTIC THERAPY
     Dosage: UNK
     Route: 065
  2. CLOTRIMAZOLE. [Suspect]
     Active Substance: CLOTRIMAZOLE
     Indication: ANTIBIOTIC THERAPY
     Dosage: UNK
     Route: 065
  3. CEPHALOSPORIN NOS [Suspect]
     Active Substance: UNSPECIFIED INGREDIENT
     Indication: ANTIBIOTIC THERAPY
     Dosage: UNK
     Route: 065

REACTIONS (2)
  - Drug-induced liver injury [Recovering/Resolving]
  - Vanishing bile duct syndrome [Recovering/Resolving]
